FAERS Safety Report 8334281-9 (Version None)
Quarter: 2012Q2

REPORT INFORMATION
  Report Type: 
  Country: None (occurrence: None)
  Receive Date: 20120503
  Receipt Date: 20120501
  Transmission Date: 20120825
  Serious: No
  Sender: FDA-Public Use
  Company Number: US-PFIZER INC-2012107521

PATIENT
  Sex: Male
  Weight: 87.075 kg

DRUGS (5)
  1. CHANTIX [Suspect]
     Indication: SMOKING CESSATION THERAPY
     Dosage: 0.5 MG, DAILY
     Route: 048
     Dates: start: 20120416
  2. HYDROCODONE [Concomitant]
     Indication: BACK PAIN
     Dosage: 10 MG, 3X/DAY
  3. CHANTIX [Suspect]
     Dosage: 1 MG, 2X/DAY
     Route: 048
     Dates: start: 20120401, end: 20120430
  4. BENAZEPRIL [Concomitant]
     Indication: BLOOD PRESSURE ABNORMAL
     Dosage: 20 MG, DAILY
  5. OXYMORPHONE [Concomitant]
     Indication: BACK PAIN
     Dosage: 40 MG, 2X/DAY

REACTIONS (1)
  - DYSPNOEA [None]
